FAERS Safety Report 13929554 (Version 1)
Quarter: 2017Q3

REPORT INFORMATION
  Report Type: Spontaneous
  Country: US (occurrence: US)
  Receive Date: 20170901
  Receipt Date: 20170901
  Transmission Date: 20171127
  Serious: No
  Sender: FDA-Public Use
  Company Number: US-PFIZER INC-2017220987

PATIENT
  Age: 83 Year
  Sex: Female

DRUGS (1)
  1. GLUCOSE [Suspect]
     Active Substance: DEXTROSE
     Dosage: UNK

REACTIONS (1)
  - Glucose tolerance impaired [Unknown]
